FAERS Safety Report 10532699 (Version 2)
Quarter: 2014Q4

REPORT INFORMATION
  Report Type: Spontaneous
  Country: US (occurrence: US)
  Receive Date: 20141021
  Receipt Date: 20141217
  Transmission Date: 20150529
  Serious: Yes (Other)
  Sender: FDA-Public Use
  Company Number: US-BAUSCH-BL-2014-007086

PATIENT
  Age: 39 Year
  Sex: Female
  Weight: 68.18 kg

DRUGS (18)
  1. PANCRELIPASE. [Concomitant]
     Active Substance: PANCRELIPASE
     Indication: PRODUCT USED FOR UNKNOWN INDICATION
     Dates: start: 200903
  2. XANAX [Concomitant]
     Active Substance: ALPRAZOLAM
     Indication: PRODUCT USED FOR UNKNOWN INDICATION
     Dosage: TWO TO THREE TIMES DAILY
  3. XYREM [Suspect]
     Active Substance: SODIUM OXYBATE
     Indication: SOMNOLENCE
     Route: 048
     Dates: start: 200804, end: 200805
  4. XYREM [Suspect]
     Active Substance: SODIUM OXYBATE
     Dosage: INCREASED FIRST/DECREASED SECOND DOSE
     Route: 048
     Dates: start: 200807, end: 20081107
  5. CONJUGATED ESTROGENS /MEDROXYPROGESTERONE ACETATE [Concomitant]
     Indication: PRODUCT USED FOR UNKNOWN INDICATION
     Dates: start: 200810
  6. VALIUM [Concomitant]
     Active Substance: DIAZEPAM
     Indication: PRODUCT USED FOR UNKNOWN INDICATION
  7. XYREM [Suspect]
     Active Substance: SODIUM OXYBATE
     Indication: NARCOLEPSY
     Route: 048
     Dates: start: 200803, end: 200804
  8. XYREM [Suspect]
     Active Substance: SODIUM OXYBATE
     Route: 048
     Dates: start: 20081108, end: 2010
  9. XYREM [Suspect]
     Active Substance: SODIUM OXYBATE
     Route: 048
     Dates: start: 20081108, end: 2010
  10. LORATADINE. [Concomitant]
     Active Substance: LORATADINE
     Indication: PRODUCT USED FOR UNKNOWN INDICATION
  11. OXYCONTIN [Concomitant]
     Active Substance: OXYCODONE HYDROCHLORIDE
     Indication: PRODUCT USED FOR UNKNOWN INDICATION
  12. XYREM [Suspect]
     Active Substance: SODIUM OXYBATE
     Route: 048
     Dates: start: 200805, end: 200805
  13. ACETAMINOPHEN. [Concomitant]
     Active Substance: ACETAMINOPHEN
     Indication: PRODUCT USED FOR UNKNOWN INDICATION
  14. ATENOLOL. [Concomitant]
     Active Substance: ATENOLOL
     Indication: PRODUCT USED FOR UNKNOWN INDICATION
     Dates: start: 200808
  15. DIAZEPAM. [Suspect]
     Active Substance: DIAZEPAM
     Indication: PRODUCT USED FOR UNKNOWN INDICATION
  16. XYREM [Suspect]
     Active Substance: SODIUM OXYBATE
     Route: 048
     Dates: start: 2008, end: 200807
  17. XYREM [Suspect]
     Active Substance: SODIUM OXYBATE
     Route: 048
     Dates: start: 20100629
  18. ALPRAZOLAM. [Suspect]
     Active Substance: ALPRAZOLAM
     Indication: PRODUCT USED FOR UNKNOWN INDICATION

REACTIONS (25)
  - Mitochondrial myopathy acquired [Not Recovered/Not Resolved]
  - Oedema peripheral [Unknown]
  - Sensory loss [Unknown]
  - Blood follicle stimulating hormone increased [Unknown]
  - Muscle fatigue [Unknown]
  - Muscular weakness [Not Recovered/Not Resolved]
  - Heart rate increased [Unknown]
  - Middle insomnia [Unknown]
  - Somnolence [Unknown]
  - Hepatic steatosis [Unknown]
  - Condition aggravated [Unknown]
  - Back pain [Not Recovered/Not Resolved]
  - Rash [Unknown]
  - Muscular weakness [Not Recovered/Not Resolved]
  - Feeling abnormal [Unknown]
  - Neuralgia [Unknown]
  - Somnambulism [Unknown]
  - Amenorrhoea [Unknown]
  - Blood oestrogen increased [Unknown]
  - Activities of daily living impaired [Recovering/Resolving]
  - Blood luteinising hormone increased [Unknown]
  - Dyspepsia [Recovered/Resolved]
  - Initial insomnia [Unknown]
  - Hypoaesthesia [Not Recovered/Not Resolved]
  - Therapeutic response decreased [Unknown]

NARRATIVE: CASE EVENT DATE: 2008
